FAERS Safety Report 8289934-8 (Version None)
Quarter: 2012Q2

REPORT INFORMATION
  Report Type: 
  Country: None (occurrence: None)
  Receive Date: 20120417
  Receipt Date: 20120402
  Transmission Date: 20120825
  Serious: Yes (Death, Hospitalization)
  Sender: FDA-Public Use
  Company Number: US-ROCHE-1056227

PATIENT
  Sex: Female

DRUGS (11)
  1. BELATACEPT [Suspect]
     Indication: RENAL TRANSPLANT
     Route: 042
     Dates: start: 20070224, end: 20111221
  2. SIMVASTATIN [Concomitant]
     Dates: start: 20070101, end: 20071229
  3. SPIRIVA [Concomitant]
     Dates: start: 20060101, end: 20120105
  4. LORTAB [Concomitant]
     Dates: end: 20110105
  5. TYLENOL (CAPLET) [Concomitant]
     Dates: end: 20111229
  6. CIPROFLOXACIN HCL [Concomitant]
     Dates: end: 20111229
  7. MYCOPHENOLATE MOFETIL (CELLCEPT) [Suspect]
     Indication: RENAL TRANSPLANT
     Route: 048
     Dates: start: 20070225, end: 20111221
  8. FLOVENT [Concomitant]
     Dates: start: 20060426, end: 20110105
  9. LISINOPRIL [Concomitant]
     Dates: end: 20111229
  10. CALCIUM W VIT D PLUS ZINC [Concomitant]
     Dates: start: 20070319, end: 20071229
  11. PREDNISONE TAB [Suspect]
     Indication: RENAL TRANSPLANT
     Route: 048
     Dates: start: 20070226

REACTIONS (3)
  - PULMONARY OEDEMA [None]
  - NON-SMALL CELL LUNG CANCER [None]
  - ADRENAL MASS [None]
